FAERS Safety Report 24244234 (Version 1)
Quarter: 2024Q3

REPORT INFORMATION
  Report Type: Spontaneous
  Country: US (occurrence: None)
  Receive Date: 20240823
  Receipt Date: 20240823
  Transmission Date: 20241017
  Serious: Yes (Hospitalization, Other)
  Sender: EMMAUS LIFE SCIENCES
  Company Number: US-Emmaus Medical, Inc.-EMM202403-000151

PATIENT
  Age: 24 Year
  Sex: Male

DRUGS (1)
  1. ENDARI [Suspect]
     Active Substance: GLUTAMINE
     Indication: Sickle cell anaemia
     Dosage: 15 G
     Route: 048
     Dates: start: 20240315, end: 202403

REACTIONS (7)
  - Sickle cell anaemia with crisis [Unknown]
  - Hospitalisation [Unknown]
  - Condition aggravated [Unknown]
  - Pain [Unknown]
  - Emergency care [Unknown]
  - Drug intolerance [Unknown]
  - Therapy interrupted [Unknown]

NARRATIVE: CASE EVENT DATE: 20240301
